FAERS Safety Report 10224834 (Version 2)
Quarter: 2014Q2

REPORT INFORMATION
  Report Type: Spontaneous
  Country: US (occurrence: US)
  Receive Date: 20140609
  Receipt Date: 20140625
  Transmission Date: 20141212
  Serious: Yes (Other)
  Sender: FDA-Public Use
  Company Number: US-GLAXOSMITHKLINE-A1075504A

PATIENT
  Age: 53 Year
  Sex: Male

DRUGS (5)
  1. ADVAIR HFA [Suspect]
     Indication: ASTHMA
     Dosage: 1PUFF TWICE PER DAY
     Route: 055
     Dates: start: 2008, end: 201306
  2. FLOVENT [Suspect]
     Indication: PRODUCT USED FOR UNKNOWN INDICATION
     Dosage: 2PUFF AS REQUIRED
     Route: 065
     Dates: start: 2012, end: 201312
  3. SPIRIVA [Concomitant]
  4. ALBUTEROL INHALER [Concomitant]
  5. INHALER [Concomitant]

REACTIONS (5)
  - Glaucoma [Unknown]
  - Cataract [Unknown]
  - Visual impairment [Unknown]
  - Vision blurred [Unknown]
  - Visual impairment [Unknown]
